FAERS Safety Report 4354499-X (Version None)
Quarter: 2004Q2

REPORT INFORMATION
  Report Type: 
  Country: None (occurrence: None)
  Receive Date: 20040503
  Receipt Date: 20040416
  Transmission Date: 20050107
  Serious: Yes (Death, Life-Threatening, Hospitalization, Congenital Anomaly)
  Sender: FDA-Public Use
  Company Number: SU-2004-002293

PATIENT
  Age: 1 Decade
  Sex: Male
  Weight: 2.7216 kg

DRUGS (1)
  1. BENICAR [Suspect]
     Dosage: MG QD PO
     Route: 048

REACTIONS (10)
  - ABDOMINAL PAIN [None]
  - CEREBRAL HAEMORRHAGE NEONATAL [None]
  - DEATH NEONATAL [None]
  - DIALYSIS [None]
  - DRUG EXPOSURE DURING PREGNANCY [None]
  - NEONATAL ANURIA [None]
  - NEPHROLITHIASIS [None]
  - OEDEMA NEONATAL [None]
  - UNINTENDED PREGNANCY [None]
  - WEIGHT INCREASED [None]
